FAERS Safety Report 10548982 (Version 1)
Quarter: 2014Q4

REPORT INFORMATION
  Report Type: Spontaneous
  Country: IT (occurrence: IT)
  Receive Date: 20141028
  Receipt Date: 20141028
  Transmission Date: 20150529
  Serious: Yes (Hospitalization)
  Sender: FDA-Public Use
  Company Number: IT-ASTRAZENECA-2014SE80042

PATIENT
  Age: 29857 Day
  Sex: Male

DRUGS (4)
  1. TICLOPIDINE [Concomitant]
     Active Substance: TICLOPIDINE
  2. ANTRA [Suspect]
     Active Substance: OMEPRAZOLE
     Route: 048
     Dates: start: 20141018, end: 20141019
  3. PERINDOPRIL [Concomitant]
     Active Substance: PERINDOPRIL
  4. AVODART [Concomitant]
     Active Substance: DUTASTERIDE

REACTIONS (1)
  - Generalised erythema [Recovered/Resolved]

NARRATIVE: CASE EVENT DATE: 20141019
